FAERS Safety Report 18104459 (Version 1)
Quarter: 2020Q3

REPORT INFORMATION
  Report Type: Spontaneous
  Country: US (occurrence: US)
  Receive Date: 20200803
  Receipt Date: 20200803
  Transmission Date: 20201103
  Serious: No
  Sender: FDA-Public Use
  Company Number: None

PATIENT
  Age: 27 Year
  Sex: Male
  Weight: 76.5 kg

DRUGS (3)
  1. VITAMIN D3 [Concomitant]
     Active Substance: CHOLECALCIFEROL
  2. STELARA [Suspect]
     Active Substance: USTEKINUMAB
     Indication: COLITIS ULCERATIVE
     Dosage: ?          QUANTITY:1 INJECTION(S);OTHER FREQUENCY:EVERY 8 WEEKS;
     Route: 058
     Dates: start: 20200604
  3. ONE?A?DAY NOS [Concomitant]
     Active Substance: MINERALS\VITAMINS

REACTIONS (3)
  - Chills [None]
  - Headache [None]
  - Nausea [None]

NARRATIVE: CASE EVENT DATE: 20200801
